FAERS Safety Report 21252014 (Version 1)
Quarter: 2022Q3

REPORT INFORMATION
  Report Type: Spontaneous
  Country: US (occurrence: US)
  Receive Date: 20220825
  Receipt Date: 20220825
  Transmission Date: 20221027
  Serious: No
  Sender: FDA-Public Use
  Company Number: US-BRISTOL-MYERS SQUIBB COMPANY-2022-041275

PATIENT
  Age: 66 Year
  Sex: Female

DRUGS (1)
  1. REVLIMID [Suspect]
     Active Substance: LENALIDOMIDE
     Indication: Plasma cell myeloma
     Dosage: TAKE 1 CAPSULE MY MOUTH EVERY DAY FOR 2 WEEKS ON THEN 2 WEEKS OFF.
     Route: 048
     Dates: start: 20210114

REACTIONS (2)
  - Vomiting [Unknown]
  - Product dose omission issue [Unknown]
